FAERS Safety Report 8834824 (Version 2)
Quarter: 2012Q4

REPORT INFORMATION
  Report Type: 
  Country: JP (occurrence: JP)
  Receive Date: 20121010
  Receipt Date: 20121023
  Transmission Date: 20130627
  Serious: Yes (Life-Threatening, Hospitalization)
  Sender: FDA-Public Use
  Company Number: JP-GLAXOSMITHKLINE-B0833948A

PATIENT
  Age: 45 None
  Sex: Male

DRUGS (13)
  1. LAMICTAL [Suspect]
     Indication: BIPOLAR I DISORDER
     Dosage: 100MG Three times per day
     Route: 048
     Dates: end: 20120923
  2. ABILIFY [Suspect]
     Indication: BIPOLAR I DISORDER
     Dosage: 24MG Per day
     Route: 048
     Dates: start: 20120904, end: 20120923
  3. LIMAS [Suspect]
     Indication: BIPOLAR I DISORDER
     Route: 048
     Dates: end: 20120903
  4. LIMAS [Suspect]
     Indication: BIPOLAR I DISORDER
     Dosage: 200MG Twice per day
     Route: 048
     Dates: start: 20120904, end: 20120923
  5. SULTOPRIDE [Suspect]
     Indication: BIPOLAR I DISORDER
     Route: 048
     Dates: end: 20120903
  6. SULTOPRIDE [Suspect]
     Indication: BIPOLAR I DISORDER
     Route: 048
     Dates: start: 20120904, end: 20120915
  7. SULTOPRIDE [Suspect]
     Indication: BIPOLAR I DISORDER
     Route: 048
     Dates: start: 20120916, end: 20120923
  8. ZOTEPINE [Suspect]
     Indication: BIPOLAR I DISORDER
     Dosage: 100MG Three times per day
     Route: 048
     Dates: end: 20120923
  9. ROHYPNOL [Suspect]
     Indication: PRODUCT USED FOR UNKNOWN INDICATION
     Dosage: 2MG Per day
     Route: 048
     Dates: end: 20120923
  10. LEVOTOMIN [Suspect]
     Indication: PRODUCT USED FOR UNKNOWN INDICATION
     Dosage: 150MG Per day
     Route: 048
     Dates: end: 20120923
  11. DIAZEPAM [Suspect]
     Indication: PRODUCT USED FOR UNKNOWN INDICATION
     Dosage: 5MG Twice per day
     Route: 048
     Dates: end: 20120923
  12. MAGMITT [Suspect]
     Indication: PRODUCT USED FOR UNKNOWN INDICATION
     Dosage: 1000MG Per day
     Route: 048
     Dates: end: 20120924
  13. PREDONINE [Concomitant]
     Indication: SYSTEMIC LUPUS ERYTHEMATOSUS
     Dosage: 5MG Twice per day
     Route: 048
     Dates: end: 20120924

REACTIONS (20)
  - Stevens-Johnson syndrome [Recovering/Resolving]
  - Ileus [Unknown]
  - Rash [Recovering/Resolving]
  - Pyrexia [Unknown]
  - Lip erosion [Unknown]
  - Erythema of eyelid [Unknown]
  - Conjunctival hyperaemia [Unknown]
  - Eye discharge [Unknown]
  - Scab [Unknown]
  - Erythema [Unknown]
  - Oral mucosa erosion [Unknown]
  - Depressive symptom [Unknown]
  - Mania [Unknown]
  - Lip blister [Unknown]
  - Oral mucosal blistering [Unknown]
  - Rash maculo-papular [Unknown]
  - Aspartate aminotransferase increased [Unknown]
  - Alanine aminotransferase increased [Unknown]
  - Pigmentation disorder [Not Recovered/Not Resolved]
  - Lip ulceration [Not Recovered/Not Resolved]
